FAERS Safety Report 9792102 (Version 4)
Quarter: 2015Q2

REPORT INFORMATION
  Report Type: Spontaneous
  Country: FR (occurrence: FR)
  Receive Date: 20140102
  Receipt Date: 20150626
  Transmission Date: 20150821
  Serious: Yes (Hospitalization, Other)
  Sender: FDA-Public Use
  Company Number: FR-UCBSA-106953

PATIENT
  Age: 44 Year
  Sex: Male
  Weight: 65 kg

DRUGS (11)
  1. VIMPAT [Suspect]
     Active Substance: LACOSAMIDE
     Indication: DYSPHONIA
     Dosage: 50 MG, 2X/DAY (BID)
     Route: 048
     Dates: start: 20130927, end: 2013
  2. ISOPTIN [Concomitant]
     Active Substance: VERAPAMIL HYDROCHLORIDE
     Dosage: UNKNOWN
  3. COVERSYL [Concomitant]
     Active Substance: PERINDOPRIL
     Dosage: UNKNOWN
  4. VIMPAT [Suspect]
     Active Substance: LACOSAMIDE
     Dosage: 200 MG DAILY
     Route: 048
     Dates: start: 2013, end: 201311
  5. VIMPAT [Suspect]
     Active Substance: LACOSAMIDE
     Dosage: 150 MG DAILY
     Route: 048
     Dates: start: 20131101, end: 20131112
  6. ALPRESS [Concomitant]
     Active Substance: PRAZOSIN
     Dosage: UNKNOWN
  7. KEPPRA [Concomitant]
     Active Substance: LEVETIRACETAM
     Indication: PARTIAL SEIZURES
     Dosage: 500 MG, 2X/DAY (BID)
     Route: 048
  8. COVERSYL [Concomitant]
     Active Substance: PERINDOPRIL
     Dosage: UNKNOWN
  9. TEGRETOL [Concomitant]
     Active Substance: CARBAMAZEPINE
  10. TEGRETOL [Concomitant]
     Active Substance: CARBAMAZEPINE
     Dosage: 300 MG DAILY
  11. URBANYL [Concomitant]
     Active Substance: CLOBAZAM

REACTIONS (16)
  - Anaemia [Unknown]
  - Nausea [Recovered/Resolved]
  - Chronic kidney disease [Unknown]
  - Asthenia [Unknown]
  - Vomiting [Unknown]
  - Headache [Unknown]
  - Abdominal pain [Recovered/Resolved]
  - Hyponatraemia [Unknown]
  - Gamma-glutamyltransferase increased [Unknown]
  - Decreased appetite [Unknown]
  - Weight decreased [Unknown]
  - Balance disorder [Unknown]
  - Hepatitis [Recovered/Resolved]
  - Transaminases increased [Recovered/Resolved]
  - Gastrointestinal disorder [Recovered/Resolved]
  - Liver disorder [Recovered/Resolved]

NARRATIVE: CASE EVENT DATE: 2013
